FAERS Safety Report 14620721 (Version 13)
Quarter: 2020Q2

REPORT INFORMATION
  Report Type: Report from Study
  Country: US (occurrence: US)
  Receive Date: 20180309
  Receipt Date: 20200513
  Transmission Date: 20200713
  Serious: Yes (Hospitalization)
  Sender: FDA-Public Use
  Company Number: US-ACTELION-A-NJ2017-160077

PATIENT
  Sex: Female
  Weight: 55.33 kg

DRUGS (6)
  1. TREPROSTINIL. [Concomitant]
     Active Substance: TREPROSTINIL
     Route: 058
  2. REMODULIN [Suspect]
     Active Substance: TREPROSTINIL
     Indication: PRODUCT USED FOR UNKNOWN INDICATION
     Dosage: 160 NG/KG, PER MIN
     Route: 042
  3. REMODULIN [Suspect]
     Active Substance: TREPROSTINIL
     Dosage: UNK
     Route: 058
  4. OPSUMIT [Suspect]
     Active Substance: MACITENTAN
     Indication: PULMONARY HYPERTENSION
     Dosage: 10 MG, QD
     Route: 048
  5. OPSUMIT [Suspect]
     Active Substance: MACITENTAN
     Dosage: 10 MG, QD
     Route: 048
  6. REMODULIN [Suspect]
     Active Substance: TREPROSTINIL
     Dosage: UNK
     Route: 065

REACTIONS (25)
  - Product dose omission [Unknown]
  - Swelling [Unknown]
  - Migraine [Unknown]
  - Abdominal distension [Unknown]
  - Nocturnal dyspnoea [Unknown]
  - Pruritus [Unknown]
  - Anaemia [Recovering/Resolving]
  - Gait disturbance [Unknown]
  - Vomiting [Unknown]
  - Oedema [Unknown]
  - Fatigue [Unknown]
  - Intestinal haemorrhage [Recovering/Resolving]
  - Nausea [Unknown]
  - Malaise [Unknown]
  - Therapy change [Unknown]
  - Viral infection [Unknown]
  - Hypotension [Unknown]
  - Peripheral swelling [Unknown]
  - Oedema peripheral [Unknown]
  - Fluid retention [Unknown]
  - Abdominal pain [Unknown]
  - Oesophageal disorder [Unknown]
  - Catheter site related reaction [Unknown]
  - Catheter site pain [Unknown]
  - Catheter management [Unknown]
